FAERS Safety Report 12947801 (Version 1)
Quarter: 2016Q4

REPORT INFORMATION
  Report Type: Spontaneous
  Country: CA (occurrence: CA)
  Receive Date: 20161116
  Receipt Date: 20161116
  Transmission Date: 20170207
  Serious: Yes (Other)
  Sender: FDA-Public Use
  Company Number: CA-TEVA-711963ACC

PATIENT
  Age: 75 Year
  Sex: Female

DRUGS (3)
  1. CO-GABAPENTIN [Suspect]
     Active Substance: GABAPENTIN
     Indication: PRODUCT USED FOR UNKNOWN INDICATION
     Dosage: FIRST WEEK- 1 CAPSULE AT BEDTIME.
     Dates: start: 201610, end: 201611
  2. CO-GABAPENTIN [Suspect]
     Active Substance: GABAPENTIN
     Dosage: SECOND WEEK- 1 CAPSULE IN THE AFTERNOON AND 1 CAPSULE AT BEDTIME.
     Dates: start: 201610, end: 201611
  3. NORVASC [Concomitant]
     Active Substance: AMLODIPINE BESYLATE
     Indication: BLOOD PRESSURE MEASUREMENT

REACTIONS (2)
  - Hypotension [Recovered/Resolved]
  - Fall [Recovered/Resolved]

NARRATIVE: CASE EVENT DATE: 20161105
